FAERS Safety Report 16743967 (Version 1)
Quarter: 2019Q3

REPORT INFORMATION
  Report Type: Spontaneous
  Country: US (occurrence: US)
  Receive Date: 20190827
  Receipt Date: 20190827
  Transmission Date: 20191005
  Serious: Yes (Other)
  Sender: FDA-Public Use
  Company Number: US-TEVA-2019-US-1098647

PATIENT
  Age: 60 Year
  Sex: Male

DRUGS (7)
  1. 5-FLUOROURACIL [Suspect]
     Active Substance: FLUOROURACIL
     Indication: MALIGNANT NEOPLASM OF AMPULLA OF VATER
     Dosage: FOLFOX REGIMEN
     Route: 065
     Dates: end: 2016
  2. FOLINIC-ACID [Concomitant]
     Active Substance: LEUCOVORIN
     Dosage: FOLFOX REGIMEN
     Route: 065
     Dates: end: 2016
  3. OXALIPLATIN. [Suspect]
     Active Substance: OXALIPLATIN
     Indication: MALIGNANT NEOPLASM OF AMPULLA OF VATER
     Dosage: FOLFOX REGIMEN
     Route: 065
     Dates: end: 2016
  4. 5-FLUOROURACIL [Suspect]
     Active Substance: FLUOROURACIL
     Indication: MALIGNANT NEOPLASM OF AMPULLA OF VATER
     Dosage: FOLFIRINOX REGIMEN
     Route: 065
     Dates: start: 2016
  5. IRINOTECAN [Suspect]
     Active Substance: IRINOTECAN
     Indication: MALIGNANT NEOPLASM OF AMPULLA OF VATER
     Route: 065
     Dates: start: 2016
  6. FOLINIC-ACID [Concomitant]
     Active Substance: LEUCOVORIN
     Dosage: FOLFIRINOX REGIMEN
     Route: 065
     Dates: start: 2016
  7. OXALIPLATIN. [Suspect]
     Active Substance: OXALIPLATIN
     Indication: MALIGNANT NEOPLASM OF AMPULLA OF VATER
     Dosage: FOLFIRINOX REGIMEN
     Route: 065
     Dates: start: 2016

REACTIONS (1)
  - Drug ineffective [Unknown]
